FAERS Safety Report 14496853 (Version 24)
Quarter: 2020Q4

REPORT INFORMATION
  Report Type: Spontaneous
  Country: US (occurrence: US)
  Receive Date: 20180207
  Receipt Date: 20201118
  Transmission Date: 20210113
  Serious: Yes (Hospitalization, Other)
  Sender: FDA-Public Use
  Company Number: US-PFIZER INC-2017283906

PATIENT
  Age: 77 Year
  Sex: Female
  Weight: 113 kg

DRUGS (19)
  1. LOSARTAN. [Concomitant]
     Active Substance: LOSARTAN
     Dosage: 50 MG, 1X/DAY
  2. VIT D [Concomitant]
     Active Substance: VITAMIN D NOS
     Dosage: UNK
  3. CHLORTHALIDONE. [Concomitant]
     Active Substance: CHLORTHALIDONE
     Dosage: UNK
  4. XELJANZ [Suspect]
     Active Substance: TOFACITINIB CITRATE
     Indication: RHEUMATOID ARTHRITIS
     Dosage: 5 MG, 2X/DAY (5 MG, TWICE DAILY)
     Route: 048
     Dates: start: 2016
  5. XELJANZ [Suspect]
     Active Substance: TOFACITINIB CITRATE
     Dosage: 10 MG, DAILY (TAKE THE 2 TABLETS AT THE SAME TIME, WHOLE DOSE ONCE A DAY)
  6. XELJANZ [Suspect]
     Active Substance: TOFACITINIB CITRATE
     Indication: IMMUNOSUPPRESSANT DRUG THERAPY
     Dosage: 5 MG, UNK
     Route: 048
  7. SPIRIVA [Concomitant]
     Active Substance: TIOTROPIUM BROMIDE MONOHYDRATE
     Indication: DYSPNOEA
     Dosage: 1 DF, DAILY (1 PUFF DAILY)
     Route: 055
  8. SYMBICORT [Concomitant]
     Active Substance: BUDESONIDE\FORMOTEROL FUMARATE DIHYDRATE
     Indication: DYSPNOEA
     Dosage: 1 DF, DAILY (1 PUFF DAILY)
     Route: 055
  9. XELJANZ [Suspect]
     Active Substance: TOFACITINIB CITRATE
     Indication: CHRONIC KIDNEY DISEASE
     Dosage: 5 MG, 1X/DAY (5 MG, ONCE DAILY)
     Route: 048
     Dates: start: 201706
  10. XELJANZ [Suspect]
     Active Substance: TOFACITINIB CITRATE
     Indication: PAIN IN EXTREMITY
     Dosage: 5 MG, 4X/DAY
     Route: 048
  11. XELJANZ [Suspect]
     Active Substance: TOFACITINIB CITRATE
     Dosage: 5 MG, 1X/DAY
     Route: 048
     Dates: start: 2018
  12. SYNTHROID [Concomitant]
     Active Substance: LEVOTHYROXINE SODIUM
     Indication: THYROIDECTOMY
     Dosage: 0.125 MG, 1X/DAY
  13. IRON [Concomitant]
     Active Substance: IRON
     Dosage: UNK (DATE STARTED: 6 MOS)
  14. PREDNISONE [PREDNISONE ACETATE] [Concomitant]
     Active Substance: PREDNISONE ACETATE
     Dosage: UNK
  15. OMEPRAZOLE. [Concomitant]
     Active Substance: OMEPRAZOLE
     Dosage: 40 MG, UNK
  16. HUMALOG [Concomitant]
     Active Substance: INSULIN LISPRO
     Dosage: UNK
  17. GLIPIZIDE. [Concomitant]
     Active Substance: GLIPIZIDE
     Dosage: 10 MG, 2X/DAY
  18. FISH OIL [Concomitant]
     Active Substance: FISH OIL
     Dosage: UNK
  19. ASPIRIN (E.C.) [Concomitant]
     Active Substance: ASPIRIN
     Dosage: UNK

REACTIONS (23)
  - Malaise [Unknown]
  - Pneumonia [Recovering/Resolving]
  - Pain [Unknown]
  - Gastric disorder [Unknown]
  - Intentional product misuse [Unknown]
  - Proctalgia [Unknown]
  - Influenza [Recovering/Resolving]
  - Cough [Unknown]
  - Dysuria [Unknown]
  - Pain in extremity [Unknown]
  - Off label use [Unknown]
  - Limb discomfort [Unknown]
  - Arthralgia [Unknown]
  - Neuropathy peripheral [Unknown]
  - Gait disturbance [Not Recovered/Not Resolved]
  - Movement disorder [Not Recovered/Not Resolved]
  - Hypoacusis [Unknown]
  - Urinary tract disorder [Unknown]
  - Choking [Unknown]
  - Constipation [Unknown]
  - Dyspnoea [Not Recovered/Not Resolved]
  - Abdominal pain upper [Unknown]
  - Haemorrhage urinary tract [Unknown]

NARRATIVE: CASE EVENT DATE: 201712
